FAERS Safety Report 12896837 (Version 1)
Quarter: 2016Q4

REPORT INFORMATION
  Report Type: Report from Study
  Country: US (occurrence: US)
  Receive Date: 20161031
  Receipt Date: 20161031
  Transmission Date: 20170207
  Serious: Yes (Other)
  Sender: FDA-Public Use
  Company Number: US-AMGEN-USASL2016147613

PATIENT
  Age: 75 Year
  Sex: Female

DRUGS (2)
  1. FLU VACCINE VII [Concomitant]
     Active Substance: INFLUENZA VIRUS VACCINE
     Dosage: UNK
  2. REPATHA [Suspect]
     Active Substance: EVOLOCUMAB
     Indication: BLOOD CHOLESTEROL INCREASED
     Dosage: 140 MG, TWICE A MONTH
     Route: 065
     Dates: start: 20160923

REACTIONS (16)
  - Hypoaesthesia [Not Recovered/Not Resolved]
  - Feeling abnormal [Not Recovered/Not Resolved]
  - Headache [Recovering/Resolving]
  - Myalgia [Not Recovered/Not Resolved]
  - Arthralgia [Recovering/Resolving]
  - Pruritus [Recovering/Resolving]
  - Malaise [Recovering/Resolving]
  - Rhinorrhoea [Unknown]
  - Nasal congestion [Recovering/Resolving]
  - Cough [Unknown]
  - Injection site pruritus [Recovering/Resolving]
  - Injection site erythema [Recovering/Resolving]
  - Rash [Recovering/Resolving]
  - Influenza like illness [Recovered/Resolved]
  - Muscle spasms [Unknown]
  - Injection site inflammation [Recovering/Resolving]

NARRATIVE: CASE EVENT DATE: 201610
